FAERS Safety Report 9648377 (Version 1)
Quarter: 2013Q4

REPORT INFORMATION
  Report Type: Spontaneous
  Country: CA (occurrence: CA)
  Receive Date: 20131028
  Receipt Date: 20131028
  Transmission Date: 20140711
  Serious: Yes (Other)
  Sender: FDA-Public Use
  Company Number: CA-NOVOPROD-390696

PATIENT
  Age: 59 Year
  Sex: Female
  Weight: 95 kg

DRUGS (1)
  1. VAGIFEM? 10 [Suspect]
     Indication: PRODUCT USED FOR UNKNOWN INDICATION
     Dosage: 2 TAB, QW. DISCONTINUED AFTER 2 YEARS
     Route: 067

REACTIONS (7)
  - Back pain [Unknown]
  - Feeling abnormal [Unknown]
  - Musculoskeletal pain [Unknown]
  - Pain in extremity [Unknown]
  - Vision blurred [Not Recovered/Not Resolved]
  - Thrombosis [Unknown]
  - Weight increased [Unknown]
